FAERS Safety Report 23828555 (Version 1)
Quarter: 2024Q2

REPORT INFORMATION
  Report Type: Spontaneous
  Country: DE (occurrence: DE)
  Receive Date: 20240508
  Receipt Date: 20240508
  Transmission Date: 20240716
  Serious: Yes (Death, Other)
  Sender: FDA-Public Use
  Company Number: DE-PFIZER INC-PV202400052412

PATIENT
  Age: 69 Year
  Sex: Female

DRUGS (13)
  1. ANASTROZOLE [Suspect]
     Active Substance: ANASTROZOLE
     Indication: Breast cancer
     Dosage: 1 MILLIGRAM, ONCE A DAY(DAILY)
     Route: 048
     Dates: start: 20210427, end: 20210713
  2. PALBOCICLIB [Suspect]
     Active Substance: PALBOCICLIB
     Indication: Breast cancer
     Dosage: 125 MILLIGRAM, UNK (DAILY FROM DAY 1 TO DAY 21 EVERY 28- DAY CYCLE)
     Route: 048
     Dates: start: 20210427, end: 20210707
  3. LOPERAMIDE [Concomitant]
     Active Substance: LOPERAMIDE
     Indication: Prophylaxis
     Dosage: UNK
     Route: 048
  4. AMLODIPINE [Concomitant]
     Active Substance: AMLODIPINE BESYLATE
     Indication: Coronary artery disease
     Dosage: UNK
     Route: 048
     Dates: end: 202107
  5. CANDESARTAN [Concomitant]
     Active Substance: CANDESARTAN
     Indication: Coronary artery disease
     Dosage: UNK
     Route: 048
     Dates: end: 202107
  6. EZETIMIBE [Concomitant]
     Active Substance: EZETIMIBE
     Indication: Type II hyperlipidaemia
     Dosage: UNK
     Route: 048
     Dates: end: 202107
  7. FOSTER [Concomitant]
     Active Substance: BECLOMETHASONE\FORMOTEROL
     Indication: Bronchiectasis
     Dosage: UNK
     Dates: end: 202107
  8. LATANOPROST [Concomitant]
     Active Substance: LATANOPROST
     Indication: Prophylaxis
     Dosage: UNK
     Route: 061
     Dates: end: 202107
  9. METFORMIN [Concomitant]
     Active Substance: METFORMIN HYDROCHLORIDE
     Indication: Type 2 diabetes mellitus
     Dosage: UNK
     Route: 048
     Dates: end: 202107
  10. ROSUVASTATIN [Concomitant]
     Active Substance: ROSUVASTATIN
     Indication: Type II hyperlipidaemia
     Dosage: UNK
     Route: 048
     Dates: end: 202107
  11. CLOPIDOGREL [Concomitant]
     Active Substance: CLOPIDOGREL BISULFATE
     Indication: Coronary artery disease
     Dosage: UNK
     Route: 048
     Dates: end: 202107
  12. METOPROLOL [Concomitant]
     Active Substance: METOPROLOL
     Indication: Type 2 diabetes mellitus
     Dosage: UNK
     Route: 048
     Dates: end: 202107
  13. JARDIANCE [Concomitant]
     Active Substance: EMPAGLIFLOZIN
     Indication: Type 2 diabetes mellitus
     Dosage: UNK
     Route: 048
     Dates: end: 202107

REACTIONS (1)
  - Sudden death [Fatal]
